FAERS Safety Report 9568199 (Version 1)
Quarter: 2013Q3

REPORT INFORMATION
  Report Type: Spontaneous
  Country: US (occurrence: US)
  Receive Date: 20130930
  Receipt Date: 20130930
  Transmission Date: 20140515
  Serious: No
  Sender: FDA-Public Use
  Company Number: US-AMGEN-USASP2013053556

PATIENT
  Age: 67 Year
  Sex: Female
  Weight: 68.03 kg

DRUGS (9)
  1. ENBREL [Suspect]
     Indication: RHEUMATOID ARTHRITIS
     Dosage: 50 MG/ML, QWK
     Route: 058
  2. EVISTA [Concomitant]
     Dosage: 60 MG, UNK
  3. TRAMADOL HCL [Concomitant]
     Dosage: 50 MG, UNK
  4. IBUPROFEN [Concomitant]
     Dosage: 200 MG, UNK
  5. ARMOUR THYROID [Concomitant]
     Dosage: 120 MG, UNK
  6. SULFASALAZIN [Concomitant]
     Dosage: 500 MG, UNK
  7. BIOTIN [Concomitant]
     Dosage: 5000 UNK, UNK
  8. CITRACAL D FORT [Concomitant]
     Dosage: UNK
  9. VITAMIN D3 [Concomitant]
     Dosage: 10000 UNIT, UNK

REACTIONS (1)
  - Herpes zoster [Unknown]
